FAERS Safety Report 6753222-9 (Version None)
Quarter: 2010Q2

REPORT INFORMATION
  Report Type: 
  Country: None (occurrence: None)
  Receive Date: 20100603
  Receipt Date: 20100603
  Transmission Date: 20101027
  Serious: Yes (Other)
  Sender: FDA-Public Use
  Company Number: None

PATIENT
  Age: 1 Year
  Sex: Female
  Weight: 10.8863 kg

DRUGS (4)
  1. CONCENTRATED TYLENOL INFANT DROPS [Suspect]
     Indication: EAR INFECTION
     Dosage: .4 ML EVERY 6 HOURS PO
     Route: 048
     Dates: start: 20090501, end: 20100524
  2. CONCENTRATED TYLENOL INFANT DROPS [Suspect]
     Indication: PYREXIA
     Dosage: .4 ML EVERY 6 HOURS PO
     Route: 048
     Dates: start: 20090501, end: 20100524
  3. CONCENTRATED TYLENOL INFANT DROPS [Suspect]
     Indication: TEETHING
     Dosage: .4 ML EVERY 6 HOURS PO
     Route: 048
     Dates: start: 20090501, end: 20100524
  4. CHILDREN'S MOTRIN [Suspect]
     Indication: FEELING COLD
     Dosage: 1/2 TSP EVERY 6 HOURS PO
     Route: 048
     Dates: start: 20100102, end: 20100228

REACTIONS (4)
  - CONVULSION [None]
  - CYANOSIS [None]
  - PRODUCT QUALITY ISSUE [None]
  - SKIN DISCOLOURATION [None]
